FAERS Safety Report 9886616 (Version 2)
Quarter: 2014Q1

REPORT INFORMATION
  Report Type: Spontaneous
  Country: GB (occurrence: GB)
  Receive Date: 20140210
  Receipt Date: 20140210
  Transmission Date: 20141002
  Serious: Yes (Other)
  Sender: FDA-Public Use
  Company Number: GB-ACTAVISPR-2013-24867

PATIENT
  Sex: Male

DRUGS (2)
  1. PREDNISOLONE [Suspect]
     Indication: MYALGIA
     Dosage: 7.5 MG TABLETS
     Route: 065
  2. PREDNISOLONE [Suspect]
     Indication: TEMPORAL ARTERITIS
     Dosage: 12.5 MG TABLETS

REACTIONS (9)
  - Hallucination [Unknown]
  - Unevaluable event [Unknown]
  - Temperature intolerance [Unknown]
  - Headache [Unknown]
  - Red blood cell sedimentation rate increased [Unknown]
  - Drug effect decreased [Unknown]
  - Infection susceptibility increased [Unknown]
  - Dyspnoea [Unknown]
  - Pain [Unknown]
